FAERS Safety Report 18166214 (Version 2)
Quarter: 2020Q3

REPORT INFORMATION
  Report Type: Report from Study
  Country: CR (occurrence: CR)
  Receive Date: 20200819
  Receipt Date: 20200903
  Transmission Date: 20201103
  Serious: Yes (Other)
  Sender: FDA-Public Use
  Company Number: CR-BIOGEN-2020BI00911052

PATIENT
  Age: 44 Year
  Sex: Female
  Weight: 81 kg

DRUGS (7)
  1. FLUOXETINE [Concomitant]
     Active Substance: FLUOXETINE HYDROCHLORIDE
     Indication: DEPRESSION
     Dosage: CAPSULE OF 20MG NIGHT 1 CAPSULE
     Route: 065
  2. AVONEX [Suspect]
     Active Substance: INTERFERON BETA-1A
  3. AVONEX [Suspect]
     Active Substance: INTERFERON BETA-1A
  4. AVONEX [Suspect]
     Active Substance: INTERFERON BETA-1A
  5. AMITRIPTYLINE [Concomitant]
     Active Substance: AMITRIPTYLINE
     Indication: DEPRESSION
     Route: 065
  6. AVONEX [Suspect]
     Active Substance: INTERFERON BETA-1A
     Indication: RELAPSING MULTIPLE SCLEROSIS
     Route: 030
     Dates: start: 20070312
  7. HYDROXYZINE [Concomitant]
     Active Substance: HYDROXYZINE HYDROCHLORIDE
     Indication: ANXIOLYTIC THERAPY
     Route: 065

REACTIONS (1)
  - Haemolytic anaemia [Not Recovered/Not Resolved]

NARRATIVE: CASE EVENT DATE: 20200806
